FAERS Safety Report 10410007 (Version 2)
Quarter: 2014Q3

REPORT INFORMATION
  Report Type: Report from Study
  Country: DE (occurrence: CL)
  Receive Date: 20140826
  Receipt Date: 20140826
  Transmission Date: 20150326
  Serious: Yes (Other)
  Sender: FDA-Public Use
  Company Number: DE-ACTELION-A-NJ2014-102899

PATIENT
  Age: 56 Year
  Sex: Female

DRUGS (12)
  1. PLAQUINOL [Concomitant]
     Active Substance: HYDROXYCHLOROQUINE SULFATE
  2. SPIRONOLACTONE. [Concomitant]
     Active Substance: SPIRONOLACTONE
  3. SALMETEROL [Concomitant]
     Active Substance: SALMETEROL
  4. OMEPRAZOLE. [Concomitant]
     Active Substance: OMEPRAZOLE
  5. SILDENAFIL [Concomitant]
     Active Substance: SILDENAFIL
  6. DIGOXINE [Concomitant]
     Active Substance: DIGOXIN
  7. AZATHIOPRINE. [Concomitant]
     Active Substance: AZATHIOPRINE
  8. VENTAVIS [Suspect]
     Active Substance: ILOPROST
     Indication: PULMONARY HYPERTENSION
     Dosage: 5 ?G, Q3HR
     Route: 055
  9. PREDNISONE. [Concomitant]
     Active Substance: PREDNISONE
  10. METOCLOPRAMIDE. [Concomitant]
     Active Substance: METOCLOPRAMIDE
  11. IPRATROPIUM [Concomitant]
     Active Substance: IPRATROPIUM
  12. CARVEDILOL. [Concomitant]
     Active Substance: CARVEDILOL

REACTIONS (2)
  - Arrhythmia [Recovered/Resolved]
  - Presyncope [Recovered/Resolved]

NARRATIVE: CASE EVENT DATE: 20140710
